FAERS Safety Report 6347578-9 (Version None)
Quarter: 2009Q3

REPORT INFORMATION
  Report Type: 
  Country: None (occurrence: None)
  Receive Date: 20090910
  Receipt Date: 20090904
  Transmission Date: 20100115
  Serious: Yes (Hospitalization, Other)
  Sender: FDA-Public Use
  Company Number: GB-B.I. PHARMACEUTICALS,INC./RIDGEFIELD-2009-BP-10546YA

PATIENT
  Age: 88 Year
  Sex: Male

DRUGS (3)
  1. FLOMAX [Suspect]
     Indication: BENIGN PROSTATIC HYPERPLASIA
     Route: 048
  2. CYCLOPENTOLATE (CYCLOPENTOLATE HYDROCHLORIDE) [Concomitant]
  3. PHENYLEPHRINE (PHENYLEPHRINE HYDROCHLORIDE) [Concomitant]

REACTIONS (2)
  - CATARACT [None]
  - FLOPPY IRIS SYNDROME [None]
